FAERS Safety Report 19876615 (Version 3)
Quarter: 2021Q4

REPORT INFORMATION
  Report Type: Report from Study
  Country: CA (occurrence: CA)
  Receive Date: 20210923
  Receipt Date: 20211028
  Transmission Date: 20220303
  Serious: Yes (Hospitalization, Other)
  Sender: FDA-Public Use
  Company Number: NVSC2021CA213975

PATIENT
  Age: 31 Year
  Sex: Female

DRUGS (8)
  1. PANTOPRAZOLE [Suspect]
     Active Substance: PANTOPRAZOLE
     Indication: Gastrooesophageal reflux disease
     Dosage: UNK, QD
     Route: 065
  2. ZENHALE [Concomitant]
     Active Substance: FORMOTEROL FUMARATE\MOMETASONE FUROATE
     Indication: Serum amyloid A protein
     Dosage: 2 DF, BID
     Route: 055
     Dates: start: 2015
  3. ZENHALE [Concomitant]
     Active Substance: FORMOTEROL FUMARATE\MOMETASONE FUROATE
     Dosage: 4 DF, BID
     Route: 055
  4. SPIRIVA [Concomitant]
     Active Substance: TIOTROPIUM BROMIDE MONOHYDRATE
     Indication: Serum amyloid A protein
     Dosage: 2 DF, BID (2.5 MCG)
     Route: 055
  5. SPIRIVA [Concomitant]
     Active Substance: TIOTROPIUM BROMIDE MONOHYDRATE
     Dosage: 2 DF, QD (2.5 MCG)
     Route: 055
  6. SPIRIVA [Concomitant]
     Active Substance: TIOTROPIUM BROMIDE MONOHYDRATE
     Dosage: 400 UG, QD (200 UG)
     Route: 055
     Dates: start: 2019
  7. VENTOLIN [Concomitant]
     Active Substance: ALBUTEROL SULFATE
     Indication: Serum amyloid A protein
     Dosage: 2 DF, BID
     Route: 055
     Dates: start: 2006
  8. VENTOLIN [Concomitant]
     Active Substance: ALBUTEROL SULFATE
     Dosage: 4 DF, BID
     Route: 055

REACTIONS (9)
  - Asthma [Unknown]
  - Renal impairment [Unknown]
  - Upper-airway cough syndrome [Unknown]
  - Nasal injury [Unknown]
  - Dyspnoea [Not Recovered/Not Resolved]
  - Cough [Unknown]
  - Middle insomnia [Unknown]
  - Nasal congestion [Unknown]
  - Wheezing [Unknown]

NARRATIVE: CASE EVENT DATE: 20200101
